FAERS Safety Report 8091476 (Version 4)
Quarter: 2013Q2

REPORT INFORMATION
  Report Type: Spontaneous
  Country: DK (occurrence: DK)
  Receive Date: 20110816
  Receipt Date: 20130607
  Transmission Date: 20140414
  Serious: Yes (Death, Hospitalization, Other)
  Sender: FDA-Public Use
  Company Number: DK-PFIZER INC-2011185510

PATIENT
  Age: 40 Year
  Sex: Female

DRUGS (1)
  1. CYTOTEC [Suspect]
     Indication: INDUCED LABOUR
     Dosage: 25 UG, SINGLE
     Route: 067
     Dates: start: 20090519, end: 20090519

REACTIONS (4)
  - Off label use [Recovered/Resolved]
  - Umbilical cord around neck [Fatal]
  - Precipitate labour [Recovered/Resolved]
  - Abnormal labour [Recovered/Resolved]
